FAERS Safety Report 6378571-8 (Version None)
Quarter: 2009Q3

REPORT INFORMATION
  Report Type: 
  Country: None (occurrence: None)
  Receive Date: 20090928
  Receipt Date: 20090916
  Transmission Date: 20100115
  Serious: Yes (Other)
  Sender: FDA-Public Use
  Company Number: NL-JNJFOC-20090901470

PATIENT
  Age: 41 Year
  Sex: Female

DRUGS (4)
  1. REMICADE [Suspect]
     Route: 042
     Dates: start: 20090529, end: 20090710
  2. REMICADE [Suspect]
     Route: 042
     Dates: start: 20090529, end: 20090710
  3. REMICADE [Suspect]
     Indication: ACNE
     Dosage: ^SINCE 6 MONTHS^
     Route: 042
     Dates: start: 20090529, end: 20090710
  4. UNKNOWN MEDICATION [Concomitant]

REACTIONS (3)
  - MIGRAINE [None]
  - PARAESTHESIA [None]
  - TRANSIENT ISCHAEMIC ATTACK [None]
